FAERS Safety Report 4643954-0 (Version None)
Quarter: 2005Q1

REPORT INFORMATION
  Report Type: 
  Country: None (occurrence: None)
  Receive Date: 20050331
  Receipt Date: 20050214
  Transmission Date: 20050727
  Serious: No
  Sender: FDA-Public Use
  Company Number: 05P-163-0290703-00

PATIENT
  Age: 46 Year
  Sex: Female
  Weight: 58.9676 kg

DRUGS (8)
  1. HUMIRA [Suspect]
     Indication: RHEUMATOID ARTHRITIS
     Dosage: 40 MG, 1 IN 2 WK, SUBCUTANEOUS
     Route: 058
     Dates: start: 20041201
  2. METHOTREXATE SODIUM [Concomitant]
  3. FOLIC ACID [Concomitant]
  4. IBUPROFEN [Concomitant]
  5. DARVOCET [Concomitant]
  6. BUDESONIDE [Concomitant]
  7. ORPHENADRINE CITRATE [Concomitant]
  8. PRASTERONE [Concomitant]

REACTIONS (1)
  - INJECTION SITE IRRITATION [None]
